FAERS Safety Report 6746664-9 (Version None)
Quarter: 2010Q2

REPORT INFORMATION
  Report Type: 
  Country: None (occurrence: None)
  Receive Date: 20100528
  Receipt Date: 20091016
  Transmission Date: 20101027
  Serious: No
  Sender: FDA-Public Use
  Company Number: US-ASTRAZENECA-2009SE31955

PATIENT
  Sex: Male

DRUGS (7)
  1. PRILOSEC OTC [Suspect]
     Indication: GASTROOESOPHAGEAL REFLUX DISEASE
     Route: 048
  2. PRILOSEC OTC [Suspect]
     Indication: AGEUSIA
     Route: 048
  3. PRILOSEC OTC [Suspect]
  4. PRILOSEC OTC [Suspect]
  5. OXYCODONE [Concomitant]
  6. HYDROCODONE [Concomitant]
  7. PAIN PATCH [Concomitant]

REACTIONS (5)
  - DRUG INEFFECTIVE FOR UNAPPROVED INDICATION [None]
  - INAPPROPRIATE SCHEDULE OF DRUG ADMINISTRATION [None]
  - LABELLED DRUG-DISEASE INTERACTION MEDICATION ERROR [None]
  - NAUSEA [None]
  - VOMITING [None]
